FAERS Safety Report 6550847-0 (Version None)
Quarter: 2010Q1

REPORT INFORMATION
  Report Type: 
  Country: None (occurrence: None)
  Receive Date: 20100122
  Receipt Date: 20100122
  Transmission Date: 20100710
  Serious: Yes (Other)
  Sender: FDA-Public Use
  Company Number: None

PATIENT
  Age: 8 Year
  Sex: Female
  Weight: 26.8 kg

DRUGS (1)
  1. LEVETIRACETAM [Suspect]
     Indication: CONVULSION
     Dosage: 600MG TWICE DAILY PO
     Route: 048
     Dates: start: 20091111, end: 20100121

REACTIONS (4)
  - AGGRESSION [None]
  - CONVULSION [None]
  - DRUG EFFECT DECREASED [None]
  - PRODUCT SUBSTITUTION ISSUE [None]
